FAERS Safety Report 9471348 (Version 1)
Quarter: 2013Q3

REPORT INFORMATION
  Report Type: Spontaneous
  Country: US (occurrence: US)
  Receive Date: 20130822
  Receipt Date: 20130822
  Transmission Date: 20140515
  Serious: Yes (Hospitalization, Other)
  Sender: FDA-Public Use
  Company Number: US-FRI-1000048000

PATIENT
  Sex: Female

DRUGS (15)
  1. TEFLARO [Suspect]
     Indication: STAPHYLOCOCCAL INFECTION
     Dosage: 1200 MG
     Route: 042
     Dates: start: 20130723, end: 20130817
  2. JANUVIA [Concomitant]
     Dosage: 50 MG
  3. UTRAM [Concomitant]
     Dosage: 50 MG EVERY 4 HOURS
  4. PREDNISONE [Concomitant]
     Dosage: 5 MG
  5. COLACE [Concomitant]
     Dosage: 200 MG
  6. NEURONTIN [Concomitant]
     Dosage: 400 MG
  7. FOLIC ACID [Concomitant]
     Dosage: 1 MG
  8. POTASSIUM [Concomitant]
     Dosage: 20 MEQ
  9. VITAMIN D3 [Concomitant]
     Dosage: 1000 IU
  10. CELEBREX [Concomitant]
     Dosage: 400 MG
  11. VITAMIN C [Concomitant]
     Dosage: 500 MG
  12. XANAX [Concomitant]
     Dosage: 0.25 MG THREE TIMES DAILY AS NEEDED
  13. METOPROLOL [Concomitant]
     Dosage: 25 MG
  14. PROTONIX [Concomitant]
     Dosage: 40 MG
  15. ZOFRAN [Concomitant]
     Dosage: 4 MG EVERY 8 HOURS AS NEEDED

REACTIONS (3)
  - Leukopenia [Not Recovered/Not Resolved]
  - Bacterial sepsis [Not Recovered/Not Resolved]
  - Tremor [Unknown]
